FAERS Safety Report 13364527 (Version 4)
Quarter: 2017Q2

REPORT INFORMATION
  Report Type: Spontaneous
  Country: US (occurrence: US)
  Receive Date: 20170323
  Receipt Date: 20170605
  Transmission Date: 20170830
  Serious: Yes (Disabling, Other)
  Sender: FDA-Public Use
  Company Number: US-CELGENEUS-USA-2017036843

PATIENT
  Age: 4 Year
  Sex: Female
  Weight: 17.42 kg

DRUGS (3)
  1. BACTRIM [Concomitant]
     Active Substance: SULFAMETHOXAZOLE\TRIMETHOPRIM
     Indication: ANTIFUNGAL PROPHYLAXIS
     Dosage: 10 MILLILITER
     Route: 065
     Dates: start: 20131202
  2. REVLIMID [Suspect]
     Active Substance: LENALIDOMIDE
     Indication: ACUTE MYELOID LEUKAEMIA
     Dosage: 35 MILLIGRAM (10 MG PLUS 25 MG)
     Route: 048
     Dates: start: 20170309, end: 20170323
  3. SULFAMETHOXAZOLE / TRIMETHOPRIM [Concomitant]
     Active Substance: SULFAMETHOXAZOLE\TRIMETHOPRIM
     Indication: PRODUCT USED FOR UNKNOWN INDICATION
     Route: 048

REACTIONS (5)
  - Petechiae [Not Recovered/Not Resolved]
  - Nausea [Recovered/Resolved]
  - Headache [Unknown]
  - Back pain [Recovered/Resolved]
  - Arthralgia [Not Recovered/Not Resolved]

NARRATIVE: CASE EVENT DATE: 201703
